FAERS Safety Report 5676696-3 (Version None)
Quarter: 2008Q1

REPORT INFORMATION
  Report Type: 
  Country: None (occurrence: None)
  Receive Date: 20080321
  Receipt Date: 20080321
  Transmission Date: 20080703
  Serious: Yes (Hospitalization, Disabling, Other)
  Sender: FDA-Public Use
  Company Number: None

PATIENT
  Age: 17 Year
  Sex: Male
  Weight: 61.3 kg

DRUGS (2)
  1. METHOTREXATE [Suspect]
     Indication: ACUTE LYMPHOCYTIC LEUKAEMIA RECURRENT
     Dosage: 5 MG/M2 X 1 IV
     Route: 042
     Dates: start: 20080317, end: 20080318
  2. LEUCOVORIN 10 MG/ML [Suspect]
     Dosage: 15-1000 MG/M2 Q6H
     Dates: start: 20080318, end: 20080320

REACTIONS (7)
  - ANGIOEDEMA [None]
  - BLOOD CREATININE INCREASED [None]
  - DRUG CLEARANCE DECREASED [None]
  - DRUG LEVEL INCREASED [None]
  - DYSPNOEA [None]
  - PARAESTHESIA [None]
  - PHARMACEUTICAL PRODUCT COMPLAINT [None]
